FAERS Safety Report 5888358-8 (Version None)
Quarter: 2008Q3

REPORT INFORMATION
  Report Type: 
  Country: None (occurrence: None)
  Receive Date: 20080916
  Receipt Date: 20080901
  Transmission Date: 20090109
  Serious: Yes (Hospitalization, Other)
  Sender: FDA-Public Use
  Company Number: MK-6035798

PATIENT
  Sex: Male
  Weight: 3.5 kg

DRUGS (7)
  1. AMOXICILLIN [Suspect]
     Indication: ASTHMA
     Dosage: TRANSPLACENTAL
     Route: 064
  2. CLARITHROMYCIN [Suspect]
     Indication: ASTHMA
     Dosage: TRANSPLACENTAL
     Route: 064
  3. SALBUTAMOL (SALBUTAMOL) [Suspect]
     Indication: DRUG USE FOR UNKNOWN INDICATION
     Dosage: TRANSPLACENTAL
     Route: 064
  4. AMINOPHYLLIN [Suspect]
     Indication: DRUG USE FOR UNKNOWN INDICATION
     Dosage: TRANSPLACENTAL
     Route: 064
  5. ATROVENT [Suspect]
     Indication: ASTHMA
     Dosage: TRANSPLACENTAL
     Route: 064
  6. HYDROCORTISONE [Suspect]
     Indication: DRUG USE FOR UNKNOWN INDICATION
     Dosage: TRANSPLACENTAL
     Route: 064
  7. MAGNESIUM SULPHATE (MAGNESIUM SULPHATE /01097001/) [Suspect]
     Indication: DRUG USE FOR UNKNOWN INDICATION
     Dosage: TRANSPLACENTAL
     Route: 064

REACTIONS (3)
  - DRUG EXPOSURE DURING PREGNANCY [None]
  - FOETAL DISTRESS SYNDROME [None]
  - TACHYCARDIA FOETAL [None]
